FAERS Safety Report 8110381-3 (Version None)
Quarter: 2012Q1

REPORT INFORMATION
  Report Type: 
  Country: None (occurrence: None)
  Receive Date: 20120202
  Receipt Date: 20120123
  Transmission Date: 20120608
  Serious: Yes (Other)
  Sender: FDA-Public Use
  Company Number: US-RB-028382-11

PATIENT
  Age: 32 Year
  Sex: Female
  Weight: 49 kg

DRUGS (3)
  1. SUBOXONE [Suspect]
     Indication: DRUG DEPENDENCE
     Route: 060
     Dates: start: 20100101, end: 20110101
  2. SUBOXONE [Suspect]
     Route: 060
     Dates: start: 20110101, end: 20110501
  3. BUPRENORPHINE HCL [Suspect]
     Indication: DRUG DEPENDENCE
     Route: 060
     Dates: start: 20110501, end: 20111112

REACTIONS (4)
  - UNDERDOSE [None]
  - MATERNAL EXPOSURE DURING PREGNANCY [None]
  - WRONG TECHNIQUE IN DRUG USAGE PROCESS [None]
  - LABOUR INDUCTION [None]
